FAERS Safety Report 8882260 (Version 1)
Quarter: 2012Q4

REPORT INFORMATION
  Report Type: Report from Study
  Country: None (occurrence: US)
  Receive Date: 20121102
  Receipt Date: 20121102
  Transmission Date: 20130627
  Serious: Yes (Other)
  Sender: FDA-Public Use
  Company Number: US-ABBOTT-12P-163-1000975-00

PATIENT
  Sex: Female

DRUGS (1)
  1. HUMIRA PEN [Suspect]
     Indication: RHEUMATOID ARTHRITIS
     Route: 058
     Dates: start: 201101

REACTIONS (3)
  - Nerve injury [Not Recovered/Not Resolved]
  - Hypotonia [Not Recovered/Not Resolved]
  - Herpes zoster [Unknown]
